FAERS Safety Report 22967376 (Version 5)
Quarter: 2024Q1

REPORT INFORMATION
  Report Type: Spontaneous
  Country: US (occurrence: US)
  Receive Date: 20230921
  Receipt Date: 20240131
  Transmission Date: 20240410
  Serious: No
  Sender: FDA-Public Use
  Company Number: US-PFIZER INC-PV202300067634

PATIENT
  Age: 78 Year
  Sex: Female

DRUGS (4)
  1. IBRANCE [Suspect]
     Active Substance: PALBOCICLIB
     Indication: Breast cancer female
     Dosage: 125 MG
  2. IBRANCE [Suspect]
     Active Substance: PALBOCICLIB
     Dosage: ALONE
  3. IBRANCE [Suspect]
     Active Substance: PALBOCICLIB
     Dosage: EVERY OTHER DAY ONCE DAILY FOR 21 DAYS OF 28-DAY CYCLE(3 WEEKS ON 1 WEEK OFF), ALTERNATE WITH 75 MG
     Route: 048
  4. IBRANCE [Suspect]
     Active Substance: PALBOCICLIB
     Dosage: ONCE DAILY FOR 21 DAYS OF 28-DAY CYCLE(3 WEEKS ON 1 WEEK OFF), EVERY OTHER DAY ALTERNATE WITH 100 MG
     Route: 048

REACTIONS (6)
  - Laboratory test abnormal [Unknown]
  - Pain [Unknown]
  - Skin fissures [Unknown]
  - Haemorrhage [Unknown]
  - Off label use [Unknown]
  - Product use issue [Unknown]
